FAERS Safety Report 9767833 (Version 2)
Quarter: 2013Q4

REPORT INFORMATION
  Report Type: Spontaneous
  Country: DE (occurrence: DE)
  Receive Date: 20131217
  Receipt Date: 20131217
  Transmission Date: 20140711
  Serious: Yes (Hospitalization, Other)
  Sender: FDA-Public Use
  Company Number: DE-UCBSA-080632

PATIENT
  Age: 51 Year
  Sex: Female

DRUGS (7)
  1. KEPPRA [Suspect]
     Indication: CONVULSION
     Dosage: UNIT: 3, NO OF DOSES RECEIVED: 3000MG
     Route: 048
     Dates: start: 20130215, end: 20130226
  2. KEPPRA [Suspect]
     Indication: CONVULSION
     Dosage: UNIT: 2; NO OF DOSES RECEIVED: 2000MG
     Route: 048
     Dates: start: 20130213, end: 20130214
  3. KEPPRA [Suspect]
     Indication: CONVULSION
     Dosage: UNIT: 2; NO OF DOSES RECEIVED: 1000MG
     Route: 048
     Dates: start: 20130211, end: 20130211
  4. TAVOR [Concomitant]
     Indication: EPILEPSY
     Route: 048
     Dates: start: 20130214, end: 20130301
  5. MADOPAR LT [Concomitant]
     Indication: UNEVALUABLE EVENT
     Route: 048
     Dates: start: 20130213, end: 20130301
  6. DELIX [Concomitant]
     Indication: HYPERTENSION
     Route: 048
     Dates: start: 20121218, end: 20130301
  7. EUTHYROX [Concomitant]
     Indication: HYPOTHYROIDISM
     Route: 048
     Dates: start: 20121212, end: 20130301

REACTIONS (4)
  - Convulsion [Recovered/Resolved]
  - Disturbance in attention [Recovered/Resolved]
  - Electroencephalogram abnormal [Recovered/Resolved]
  - Inappropriate schedule of drug administration [Recovered/Resolved]
